FAERS Safety Report 10264144 (Version 1)
Quarter: 2014Q2

REPORT INFORMATION
  Report Type: Spontaneous
  Country: CN (occurrence: CN)
  Receive Date: 20140627
  Receipt Date: 20140627
  Transmission Date: 20141212
  Serious: Yes (Life-Threatening)
  Sender: FDA-Public Use
  Company Number: CN-BRISTOL-MYERS SQUIBB COMPANY-21075312

PATIENT
  Age: 42 Year
  Sex: Male

DRUGS (2)
  1. VELOSEF FOR INJ [Suspect]
     Indication: NASOPHARYNGITIS
     Route: 041
     Dates: start: 20131204, end: 20131204
  2. GLUCOSE 10 BAXTER [Concomitant]
     Indication: NASOPHARYNGITIS
     Dosage: INJ
     Route: 030
     Dates: start: 20131204, end: 20131204

REACTIONS (5)
  - Palpitations [Recovered/Resolved]
  - Dyspnoea [Recovered/Resolved]
  - Anaphylactic shock [Recovered/Resolved]
  - Chills [None]
  - Infusion related reaction [None]
